FAERS Safety Report 24728582 (Version 15)
Quarter: 2025Q3

REPORT INFORMATION
  Report Type: Spontaneous
  Country: CL (occurrence: CL)
  Receive Date: 20241212
  Receipt Date: 20250918
  Transmission Date: 20251020
  Serious: Yes (Hospitalization)
  Sender: BIOMARIN
  Company Number: CL-BIOMARINAP-CL-2024-162472

PATIENT
  Age: 17 Year
  Sex: Male
  Weight: 37.2 kg

DRUGS (4)
  1. VIMIZIM [Suspect]
     Active Substance: ELOSULFASE ALFA
     Indication: Mucopolysaccharidosis IV
     Dosage: 2 MILLIGRAM/KILOGRAM, QW
  2. VIMIZIM [Suspect]
     Active Substance: ELOSULFASE ALFA
  3. VIMIZIM [Suspect]
     Active Substance: ELOSULFASE ALFA
     Dosage: 70 MILLIGRAM, QW
  4. VIMIZIM [Suspect]
     Active Substance: ELOSULFASE ALFA
     Dates: start: 20150415, end: 20230705

REACTIONS (15)
  - Seizure [Not Recovered/Not Resolved]
  - Neoplasm [Recovered/Resolved with Sequelae]
  - Coma [Recovered/Resolved with Sequelae]
  - Endotracheal intubation complication [Recovering/Resolving]
  - Loss of personal independence in daily activities [Recovering/Resolving]
  - Grip strength decreased [Not Recovered/Not Resolved]
  - Gait inability [Recovering/Resolving]
  - Fatigue [Unknown]
  - Asthenia [Not Recovered/Not Resolved]
  - Urine abnormality [Recovered/Resolved]
  - Bone deformity [Not Recovered/Not Resolved]
  - Joint deformity [Not Recovered/Not Resolved]
  - Soft tissue disorder [Not Recovered/Not Resolved]
  - Fine motor skill dysfunction [Recovering/Resolving]
  - Muscular weakness [Not Recovered/Not Resolved]

NARRATIVE: CASE EVENT DATE: 20241201
